FAERS Safety Report 11468329 (Version 2)
Quarter: 2015Q3

REPORT INFORMATION
  Report Type: Spontaneous
  Country: US (occurrence: US)
  Receive Date: 20150903
  Receipt Date: 20150903
  Transmission Date: 20151125
  Serious: No
  Sender: FDA-Public Use
  Company Number: US-ELI_LILLY_AND_COMPANY-US200802002536

PATIENT
  Age: 0 Year

DRUGS (10)
  1. VICOPROFEN [Concomitant]
     Active Substance: HYDROCODONE BITARTRATE\IBUPROFEN
     Dosage: UNK, UNK
     Dates: start: 200703, end: 20070509
  2. CELEXA [Concomitant]
     Active Substance: CITALOPRAM HYDROBROMIDE
     Dosage: UNK, UNK
     Dates: start: 200703, end: 20070509
  3. VENTOLIN [Concomitant]
     Active Substance: ALBUTEROL SULFATE
     Dosage: UNK, UNK
     Dates: end: 20071231
  4. ADVAIR HFA [Concomitant]
     Active Substance: FLUTICASONE PROPIONATE\SALMETEROL XINAFOATE
     Dates: end: 20071231
  5. VERAPAMIL [Concomitant]
     Active Substance: VERAPAMIL HYDROCHLORIDE
     Dosage: UNK, UNK
     Route: 064
     Dates: start: 200703, end: 20070509
  6. MIDRIN [Concomitant]
     Active Substance: ACETAMINOPHEN\DICHLORALPHENAZONE\ISOMETHEPTENE
     Dosage: UNK, UNK
     Dates: start: 200703, end: 20070509
  7. NEURONTIN [Concomitant]
     Active Substance: GABAPENTIN
     Dosage: UNK, UNK
     Dates: start: 200703, end: 20070509
  8. PERCOCET [Concomitant]
     Active Substance: ACETAMINOPHEN\OXYCODONE HYDROCHLORIDE
     Dosage: UNK, UNK
     Dates: start: 200703, end: 20070509
  9. CYMBALTA [Suspect]
     Active Substance: DULOXETINE HYDROCHLORIDE
     Indication: DEPRESSION
     Dosage: 60 MG, 2/D
     Route: 064
     Dates: start: 2007, end: 20071231
  10. ELAVIL [Concomitant]
     Active Substance: AMITRIPTYLINE HYDROCHLORIDE
     Dosage: UNK, UNK
     Dates: start: 200703, end: 20070509

REACTIONS (10)
  - Foetal exposure during pregnancy [Recovered/Resolved]
  - Tremor [Not Recovered/Not Resolved]
  - Irritability [Recovered/Resolved]
  - Grunting [Not Recovered/Not Resolved]
  - Attention deficit/hyperactivity disorder [Unknown]
  - Oppositional defiant disorder [Unknown]
  - Aggression [Unknown]
  - Hyperaesthesia [Recovered/Resolved]
  - Abdominal pain upper [Unknown]
  - Feeding disorder of infancy or early childhood [Unknown]

NARRATIVE: CASE EVENT DATE: 200703
